FAERS Safety Report 26190796 (Version 1)
Quarter: 2025Q4

REPORT INFORMATION
  Report Type: Spontaneous
  Country: US (occurrence: US)
  Receive Date: 20251223
  Receipt Date: 20251223
  Transmission Date: 20260117
  Serious: No
  Sender: SANDOZ
  Company Number: US-SANDOZ-SDZ2025US096621

PATIENT
  Sex: Male

DRUGS (2)
  1. HYRIMOZ [Suspect]
     Active Substance: ADALIMUMAB-ADAZ
     Indication: Product used for unknown indication
     Dosage: UNK (STRENGTH 40MG/0.4ML) HYRIMOZ INJECTION, FOR SUBCUTANEOUS USE IN PREFILLED PEN
  2. HYRIMOZ [Suspect]
     Active Substance: ADALIMUMAB-ADAZ

REACTIONS (3)
  - Circumstance or information capable of leading to device use error [Unknown]
  - Accidental exposure to product [Unknown]
  - Device malfunction [Unknown]

NARRATIVE: CASE EVENT DATE: 20251218
